FAERS Safety Report 4346758-1 (Version None)
Quarter: 2004Q1

REPORT INFORMATION
  Report Type: 
  Country: None (occurrence: None)
  Receive Date: 20040329
  Receipt Date: 20040123
  Transmission Date: 20041129
  Serious: No
  Sender: FDA-Public Use
  Company Number: USA040157417

PATIENT
  Age: 49 Year
  Sex: Male
  Weight: 89 kg

DRUGS (4)
  1. STRATTERA [Suspect]
     Indication: ATTENTION DEFICIT/HYPERACTIVITY DISORDER
     Dosage: 40 MG/DAY
     Dates: start: 20040122
  2. SEROQUEL [Concomitant]
  3. LAMISIL [Concomitant]
  4. ALEVE [Concomitant]

REACTIONS (6)
  - GASTROENTERITIS VIRAL [None]
  - HEART RATE INCREASED [None]
  - INSOMNIA [None]
  - NAUSEA [None]
  - SEXUAL DYSFUNCTION [None]
  - VISION BLURRED [None]
